FAERS Safety Report 9762717 (Version 1)
Quarter: 2013Q4

REPORT INFORMATION
  Report Type: Spontaneous
  Country: IT (occurrence: IT)
  Receive Date: 20131216
  Receipt Date: 20131216
  Transmission Date: 20140711
  Serious: Yes (Other)
  Sender: FDA-Public Use
  Company Number: PHHY2013IT146304

PATIENT
  Sex: Male

DRUGS (1)
  1. ZOMETA [Suspect]
     Indication: METASTASES TO BONE
     Dosage: 3 MG, MONTHLY
     Route: 042
     Dates: start: 20111223, end: 20130702

REACTIONS (1)
  - Osteonecrosis of jaw [Recovering/Resolving]
